FAERS Safety Report 13130683 (Version 1)
Quarter: 2017Q1

REPORT INFORMATION
  Report Type: Spontaneous
  Country: US (occurrence: US)
  Receive Date: 20170119
  Receipt Date: 20170119
  Transmission Date: 20170428
  Serious: No
  Sender: FDA-Public Use
  Company Number: US-TARO-2016TAR00058

PATIENT
  Age: 39 Year
  Sex: Male

DRUGS (1)
  1. KETOCONAZOLE CREAM 2% [Suspect]
     Active Substance: KETOCONAZOLE
     Indication: TINEA PEDIS
     Dosage: UNK
     Route: 061

REACTIONS (3)
  - Nail discolouration [Not Recovered/Not Resolved]
  - Drug ineffective [Unknown]
  - Tinea pedis [Not Recovered/Not Resolved]
